FAERS Safety Report 5404029-6 (Version None)
Quarter: 2007Q3

REPORT INFORMATION
  Report Type: 
  Country: None (occurrence: None)
  Receive Date: 20070802
  Receipt Date: 20070718
  Transmission Date: 20080115
  Serious: Yes (Death)
  Sender: FDA-Public Use
  Company Number: FR-GENENTECH-245345

PATIENT
  Age: 70 Year
  Sex: Female

DRUGS (6)
  1. AVASTIN [Suspect]
     Indication: COLON CANCER
     Dosage: 5 MG, UNK
     Route: 042
     Dates: start: 20070301
  2. IRINOTECAN HCL [Suspect]
     Indication: COLON CANCER
     Dosage: 180 MG, UNK
     Dates: start: 20070301
  3. FLUOROURACIL [Suspect]
     Indication: COLON CANCER
     Route: 042
     Dates: start: 20070301
  4. ELVORINE [Suspect]
     Indication: COLON CANCER
     Route: 042
     Dates: start: 20070301
  5. ALUMINUM HYDROXIDE AND MAGNESIUM TRISILICATE [Concomitant]
     Indication: DRUG USE FOR UNKNOWN INDICATION
  6. OXYCONTIN [Concomitant]
     Indication: DRUG USE FOR UNKNOWN INDICATION

REACTIONS (3)
  - ANAEMIA [None]
  - CEREBRAL INFARCTION [None]
  - NEUTROPENIA [None]
